FAERS Safety Report 8618967-4 (Version None)
Quarter: 2012Q3

REPORT INFORMATION
  Report Type: 
  Country: None (occurrence: None)
  Receive Date: 20120824
  Receipt Date: 20120817
  Transmission Date: 20120928
  Serious: Yes (Other)
  Sender: FDA-Public Use
  Company Number: PHEH2012US016511

PATIENT
  Sex: Female

DRUGS (3)
  1. RECLAST [Suspect]
     Route: 042
  2. FOSAMAX [Suspect]
  3. BONIVA [Suspect]

REACTIONS (6)
  - EMOTIONAL DISTRESS [None]
  - PELVIC FRACTURE [None]
  - INJURY [None]
  - HIP FRACTURE [None]
  - PAIN [None]
  - FEMUR FRACTURE [None]
